FAERS Safety Report 9065903 (Version 1)
Quarter: 2013Q1

REPORT INFORMATION
  Report Type: Report from Study
  Country: US (occurrence: US)
  Receive Date: 20130130
  Receipt Date: 20130130
  Transmission Date: 20140127
  Serious: No
  Sender: FDA-Public Use
  Company Number: US-ABBOTT-12P-163-0977607-00

PATIENT
  Age: 46 Year
  Sex: Female

DRUGS (7)
  1. HUMIRA [Suspect]
     Dates: start: 201012
  2. METHOTREXATE [Concomitant]
     Indication: CROHN^S DISEASE
     Dosage: WEEKLY
     Route: 048
  3. FOLIC ACID [Concomitant]
     Indication: CROHN^S DISEASE
     Route: 048
  4. VITAMIN A [Concomitant]
     Indication: VITAMIN SUPPLEMENTATION
     Route: 048
  5. VITAMIN B [Concomitant]
     Indication: VITAMIN SUPPLEMENTATION
     Route: 048
  6. VITAMIN D [Concomitant]
     Indication: VITAMIN SUPPLEMENTATION
     Route: 048
  7. VITAMIN E [Concomitant]
     Indication: VITAMIN SUPPLEMENTATION
     Route: 048

REACTIONS (6)
  - Malaise [Not Recovered/Not Resolved]
  - Fistula [Not Recovered/Not Resolved]
  - Diarrhoea [Not Recovered/Not Resolved]
  - Injection site pain [Unknown]
  - Wrong technique in drug usage process [Unknown]
  - Incorrect dose administered [Unknown]
